FAERS Safety Report 5525108-9 (Version None)
Quarter: 2007Q4

REPORT INFORMATION
  Report Type: 
  Country: None (occurrence: None)
  Receive Date: 20071119
  Receipt Date: 20071112
  Transmission Date: 20080405
  Serious: Yes (Hospitalization, Other)
  Sender: FDA-Public Use
  Company Number: 2007SP021548

PATIENT
  Age: 53 Year
  Sex: Female
  Weight: 62.1428 kg

DRUGS (4)
  1. PEG-INTRON [Suspect]
     Indication: HEPATITIS C
     Dosage: SC
     Route: 058
     Dates: start: 20071010
  2. REBETOL [Suspect]
     Indication: HEPATITIS C
     Dosage: PO
     Route: 048
     Dates: start: 20071010
  3. LASIX [Concomitant]
     Dates: start: 20071001
  4. ALDACTONE [Concomitant]

REACTIONS (8)
  - AMMONIA INCREASED [None]
  - BLOOD SODIUM DECREASED [None]
  - CONFUSIONAL STATE [None]
  - DECREASED APPETITE [None]
  - INSOMNIA [None]
  - MENTAL STATUS CHANGES [None]
  - NAUSEA [None]
  - SPEECH DISORDER [None]
